FAERS Safety Report 10074345 (Version 1)
Quarter: 2014Q2

REPORT INFORMATION
  Report Type: Report from Study
  Country: GB (occurrence: GB)
  Receive Date: 20140413
  Receipt Date: 20140413
  Transmission Date: 20141212
  Serious: Yes (Hospitalization)
  Sender: FDA-Public Use
  Company Number: GB-ROCHE-1373829

PATIENT
  Age: 74 Year
  Sex: Male

DRUGS (8)
  1. CAPECITABINE [Suspect]
     Indication: ADENOCARCINOMA OF APPENDIX
     Route: 065
     Dates: start: 20020123, end: 20020214
  2. MITOMYCIN [Suspect]
     Indication: ADENOCARCINOMA OF APPENDIX
     Route: 065
     Dates: start: 20020123, end: 20020214
  3. DICLOFENAC [Concomitant]
     Route: 065
  4. DIAZEPAM [Concomitant]
     Route: 065
  5. TRIMIPRAMINE [Concomitant]
     Route: 065
  6. METOCLOPRAMIDE [Concomitant]
     Route: 065
  7. LOSEC [Concomitant]
     Route: 065
  8. PANTOPRAZOLE [Concomitant]
     Route: 065

REACTIONS (1)
  - Intestinal obstruction [Unknown]
